FAERS Safety Report 8278322 (Version 2)
Quarter: 2012Q4

REPORT INFORMATION
  Report Type: 
  Country: US (occurrence: US)
  Receive Date: 20111207
  Receipt Date: 20121120
  Transmission Date: 20130627
  Serious: Yes (Hospitalization)
  Sender: FDA-Public Use
  Company Number: US-GLAXOSMITHKLINE-A0928745A

PATIENT
  Age: 55 Year
  Sex: Male
  Weight: 145.5 kg

DRUGS (1)
  1. AVANDIA [Suspect]
     Indication: DIABETES MELLITUS
     Route: 048
     Dates: start: 200010, end: 200705

REACTIONS (5)
  - Cardiac failure congestive [Not Recovered/Not Resolved]
  - Left atrial dilatation [Unknown]
  - Aortic arteriosclerosis [Unknown]
  - Diaphragmatic paralysis [Unknown]
  - Lung disorder [Unknown]
